FAERS Safety Report 6964645-7 (Version None)
Quarter: 2010Q3

REPORT INFORMATION
  Report Type: 
  Country: None (occurrence: None)
  Receive Date: 20100903
  Receipt Date: 20100824
  Transmission Date: 20110219
  Serious: Yes (Hospitalization, Other)
  Sender: FDA-Public Use
  Company Number: CA-JNJFOC-20100808220

PATIENT
  Age: 76 Year
  Sex: Male
  Weight: 81.8 kg

DRUGS (15)
  1. FENTANYL CITRATE [Suspect]
     Indication: PAIN MANAGEMENT
     Route: 062
  2. BENADRYL [Suspect]
     Indication: HYPERSENSITIVITY
     Route: 042
  3. FENTANYL CITRATE [Suspect]
     Indication: PRODUCT USED FOR UNKNOWN INDICATION
     Route: 061
  4. FENTANYL CITRATE [Suspect]
     Route: 061
  5. PACLITAXEL [Suspect]
     Indication: NON-SMALL CELL LUNG CANCER
     Route: 042
  6. PACLITAXEL [Suspect]
     Route: 042
  7. RANITIDINE [Suspect]
     Indication: PREMEDICATION
     Route: 042
  8. ZOFRAN [Suspect]
     Indication: PREMEDICATION
     Route: 042
  9. DILAUDID [Suspect]
     Indication: PAIN MANAGEMENT
     Route: 048
  10. DILAUDID [Suspect]
     Route: 048
  11. DECADRON [Suspect]
     Indication: HYPERSENSITIVITY
     Route: 042
  12. GABAPENTIN [Concomitant]
     Indication: PRODUCT USED FOR UNKNOWN INDICATION
     Route: 065
  13. METOPROLOL TARTRATE [Concomitant]
     Indication: PRODUCT USED FOR UNKNOWN INDICATION
     Route: 065
  14. NORVASC [Concomitant]
     Indication: PRODUCT USED FOR UNKNOWN INDICATION
     Route: 065
  15. NOVOHYDRAZIDE [Concomitant]
     Indication: PRODUCT USED FOR UNKNOWN INDICATION
     Route: 065

REACTIONS (4)
  - DEPRESSED LEVEL OF CONSCIOUSNESS [None]
  - MIOSIS [None]
  - OXYGEN SATURATION DECREASED [None]
  - PUPILLARY REFLEX IMPAIRED [None]
